FAERS Safety Report 7437212-9 (Version None)
Quarter: 2011Q2

REPORT INFORMATION
  Report Type: 
  Country: None (occurrence: None)
  Receive Date: 20110426
  Receipt Date: 20110419
  Transmission Date: 20111010
  Serious: Yes (Hospitalization)
  Sender: FDA-Public Use
  Company Number: US-BRISTOL-MYERS SQUIBB COMPANY-13633383

PATIENT
  Age: 43 Year
  Sex: Female
  Weight: 94 kg

DRUGS (14)
  1. VICODIN [Concomitant]
     Indication: CHEST PAIN
     Dosage: AS NECESSARY.
     Route: 048
     Dates: start: 20060301
  2. COMPAZINE [Concomitant]
     Indication: NAUSEA
     Dosage: AS NECESSARY.
     Route: 048
     Dates: start: 20061207
  3. MAGNESIUM [Concomitant]
     Indication: HYPOMAGNESAEMIA
     Route: 048
     Dates: start: 20070220
  4. ARANESP [Concomitant]
     Indication: ANAEMIA
     Route: 058
     Dates: start: 20060427
  5. LEXAPRO [Concomitant]
     Route: 048
  6. COMPAZINE [Concomitant]
     Indication: PROPHYLAXIS
     Dosage: AS NECESSARY.
     Route: 048
     Dates: start: 20061207
  7. IRINOTECAN HCL [Suspect]
     Indication: BREAST CANCER
     Dosage: 176.4MG ON 27FEB-27FEB07:NO OF INF-4. 187.2MG ON 07DEC06-14DEC06:NO OF INF-1
     Route: 042
     Dates: start: 20061207
  8. POTASSIUM [Concomitant]
     Indication: HYPOKALAEMIA
     Route: 048
     Dates: start: 20070103
  9. SLOW-MAG [Concomitant]
     Route: 048
  10. SILVER ACETATE [Concomitant]
     Indication: SKIN ULCER
     Dosage: 2DAYS.
     Route: 061
     Dates: start: 20061208
  11. CARBOPLATIN [Suspect]
     Indication: BREAST CANCER
     Dosage: 240MG ON 27FEB-27FEB07:NO OF INF-4. ON 07DEC06-07DEC06:NO OF INF-1
     Route: 042
     Dates: start: 20061207
  12. ERBITUX [Suspect]
     Indication: BREAST CANCER
     Dosage: 490MG ON 27FEB-27FEB07:NO OF INF-4. 515MG ON 07DEC06-21DEC06:NO OF INF-1
     Route: 042
     Dates: start: 20061207
  13. CIPRO [Concomitant]
     Indication: SKIN ULCER
     Route: 048
     Dates: start: 20061208
  14. NEULASTA [Concomitant]
     Indication: PROPHYLAXIS
     Route: 058
     Dates: start: 20070117

REACTIONS (3)
  - FEBRILE NEUTROPENIA [None]
  - SEPSIS [None]
  - SKIN ULCER [None]
